FAERS Safety Report 7571441-9 (Version None)
Quarter: 2011Q2

REPORT INFORMATION
  Report Type: 
  Country: None (occurrence: None)
  Receive Date: 20110624
  Receipt Date: 20110620
  Transmission Date: 20111010
  Serious: Yes (Hospitalization)
  Sender: FDA-Public Use
  Company Number: GB-GENZYME-CAMP-1000779

PATIENT
  Age: 68 Year
  Sex: Male

DRUGS (6)
  1. ANTIBIOTICS [Concomitant]
     Indication: PYREXIA
  2. CAMPATH [Suspect]
     Dosage: 30 MG, 3X/W
     Route: 058
  3. ANTIBIOTICS [Concomitant]
     Indication: COUGH
     Dosage: UNK
     Route: 048
  4. CAMPATH [Suspect]
     Indication: THERAPEUTIC RESPONSE DECREASED
     Dosage: 30 MG, 3X/W
     Route: 058
  5. CAMPATH [Suspect]
     Dosage: 30 MG, 3X/W
     Route: 058
     Dates: start: 20090601
  6. CAMPATH [Suspect]
     Indication: CHRONIC LYMPHOCYTIC LEUKAEMIA
     Dosage: 30 MG, 3X/W
     Route: 058

REACTIONS (2)
  - CHRONIC OBSTRUCTIVE PULMONARY DISEASE [None]
  - LOWER RESPIRATORY TRACT INFECTION [None]
